FAERS Safety Report 20321733 (Version 2)
Quarter: 2022Q1

REPORT INFORMATION
  Report Type: Spontaneous
  Country: US (occurrence: US)
  Receive Date: 20220111
  Receipt Date: 20220304
  Transmission Date: 20220423
  Serious: Yes (Disabling, Other)
  Sender: FDA-Public Use
  Company Number: US-TEVA-2022-US-1998265

PATIENT
  Age: 51 Year
  Sex: Female
  Weight: 68 kg

DRUGS (13)
  1. DOCETAXEL [Suspect]
     Active Substance: DOCETAXEL
     Indication: Invasive lobular breast carcinoma
     Dosage: 75 MG/M2, NUMBER OF CYCLE - 06, FREQUENCY - EVERY THREE WEEKS
     Route: 042
     Dates: start: 20150115, end: 20150430
  2. CYCLOPHOSPHAMIDE [Suspect]
     Active Substance: CYCLOPHOSPHAMIDE
     Indication: Invasive lobular breast carcinoma
     Dosage: 600 MG/M2, NUMBER OF CYCLE - 06, FREQUENCY - EVERY THREE WEEKS
     Route: 042
     Dates: start: 20150115, end: 20150430
  3. TRASTUZUMAB [Suspect]
     Active Substance: TRASTUZUMAB
     Indication: Invasive lobular breast carcinoma
     Dosage: 8 MG/KG
     Route: 042
     Dates: start: 20150115, end: 20150115
  4. TRASTUZUMAB [Suspect]
     Active Substance: TRASTUZUMAB
     Dosage: 6 MG/KG, FREQUENCY - EVERY THREE WEEKS FOR 1 YEAR
     Route: 042
     Dates: start: 20150205, end: 20151214
  5. NEULASTA [Suspect]
     Active Substance: PEGFILGRASTIM
     Indication: Invasive lobular breast carcinoma
     Dosage: FREQUENCY - EVERY THREE WEEKS, POST CHEMOTHERAPY
     Route: 058
     Dates: start: 20150116, end: 20150410
  6. DEXAMETHASONE [Suspect]
     Active Substance: DEXAMETHASONE
     Indication: Prophylaxis of nausea and vomiting
     Dosage: TWO TABLETS TWICE A DAY ON DAY BEFORE CHEMOTHERAPY AND DAY AFTER CHEMOTHERAPY
     Route: 048
     Dates: start: 20150114
  7. ALPRAZOLAM [Concomitant]
     Active Substance: ALPRAZOLAM
     Dosage: .5 MILLIGRAM DAILY; NIGHTLY, PRN
     Route: 048
     Dates: start: 2009
  8. METOPROLOL SUCCINATE [Concomitant]
     Active Substance: METOPROLOL SUCCINATE
     Dosage: 25 MILLIGRAM DAILY;
     Route: 048
     Dates: start: 2009
  9. ONDANSETRON [Concomitant]
     Active Substance: ONDANSETRON
     Dosage: 24 MILLIGRAM DAILY; PRN
     Route: 048
  10. PROCHLORPERAZINE [Concomitant]
     Active Substance: PROCHLORPERAZINE
     Dosage: 40 MILLIGRAM DAILY; PRN
     Route: 048
  11. VITAMINS [Concomitant]
     Active Substance: VITAMINS
     Dosage: 1 DOSAGE FORMS DAILY;
     Route: 048
  12. EMEND [Concomitant]
     Active Substance: APREPITANT
     Indication: Prophylaxis of nausea and vomiting
     Dosage: FREQUENCY: ONCE
     Route: 048
     Dates: start: 20150115
  13. INFLUENZA VIRUS VACCINE [Concomitant]
     Active Substance: INFLUENZA VIRUS VACCINE
     Dosage: TS 2014-2015 (5YR PLUS)-PF
     Route: 030

REACTIONS (25)
  - Alopecia areata [Not Recovered/Not Resolved]
  - Madarosis [Not Recovered/Not Resolved]
  - Neutropenia [Recovering/Resolving]
  - Leukopenia [Recovering/Resolving]
  - Nausea [Recovered/Resolved]
  - Dry skin [Recovering/Resolving]
  - Onychoclasis [Recovering/Resolving]
  - Pyrexia [Recovered/Resolved]
  - Fatigue [Not Recovered/Not Resolved]
  - Upper respiratory tract infection [Recovered/Resolved]
  - Rhinorrhoea [Recovered/Resolved]
  - Cough [Recovered/Resolved]
  - Dyspepsia [Recovered/Resolved]
  - Rash [Recovering/Resolving]
  - Blood glucose increased [Unknown]
  - Axillary mass [Unknown]
  - Pain [Unknown]
  - Bone pain [Recovered/Resolved]
  - Pain in extremity [Unknown]
  - Hair texture abnormal [Not Recovered/Not Resolved]
  - Hair colour changes [Not Recovered/Not Resolved]
  - Injection site pain [Unknown]
  - Oedema peripheral [Recovered/Resolved]
  - Arthralgia [Unknown]
  - Limb discomfort [Unknown]

NARRATIVE: CASE EVENT DATE: 20150101
